FAERS Safety Report 12962813 (Version 1)
Quarter: 2016Q4

REPORT INFORMATION
  Report Type: Report from Study
  Country: US (occurrence: US)
  Receive Date: 20161121
  Receipt Date: 20161121
  Transmission Date: 20170207
  Serious: Yes (Other)
  Sender: FDA-Public Use
  Company Number: US-AMGEN-USASL2016162586

PATIENT
  Age: 52 Year
  Sex: Female

DRUGS (2)
  1. ENBREL [Suspect]
     Active Substance: ETANERCEPT
     Indication: RHEUMATOID ARTHRITIS
     Dosage: 50 MG, UNK
     Route: 065
  2. METHOTREXATE. [Suspect]
     Active Substance: METHOTREXATE
     Indication: PRODUCT USED FOR UNKNOWN INDICATION
     Dosage: UNK
     Route: 065
     Dates: start: 1996

REACTIONS (13)
  - Injection site swelling [Unknown]
  - Nodule [Unknown]
  - Bone marrow failure [Unknown]
  - Hyperaesthesia [Unknown]
  - Raynaud^s phenomenon [Unknown]
  - Injection site urticaria [Unknown]
  - Peripheral coldness [Unknown]
  - White blood cell count decreased [Unknown]
  - Condition aggravated [Unknown]
  - Injection site pruritus [Unknown]
  - Injection site rash [Unknown]
  - Pericardial fibrosis [Unknown]
  - Injection site erythema [Unknown]
